FAERS Safety Report 6753964-5 (Version None)
Quarter: 2010Q2

REPORT INFORMATION
  Report Type: 
  Country: None (occurrence: None)
  Receive Date: 20100603
  Receipt Date: 20100525
  Transmission Date: 20101027
  Serious: Yes (Hospitalization)
  Sender: FDA-Public Use
  Company Number: A0862299A

PATIENT
  Sex: Female

DRUGS (3)
  1. AVANDIA [Suspect]
  2. PRANDIN [Suspect]
  3. GLUCOPHAGE [Suspect]

REACTIONS (2)
  - ADVERSE DRUG REACTION [None]
  - HEPATIC FAILURE [None]
